FAERS Safety Report 11500651 (Version 1)
Quarter: 2015Q3

REPORT INFORMATION
  Report Type: Spontaneous
  Country: US (occurrence: None)
  Receive Date: 20150911
  Receipt Date: 20150911
  Transmission Date: 20151125
  Serious: Yes (Other)
  Sender: FDA-Public Use
  Company Number: None

PATIENT
  Age: 70 Year
  Sex: Male
  Weight: 74.84 kg

DRUGS (6)
  1. VITAMIN C [Concomitant]
     Active Substance: ASCORBIC ACID
  2. ENTECAVIR. [Suspect]
     Active Substance: ENTECAVIR
     Indication: HEPATITIS B
     Dosage: 1 PILL PER DAY ONCE DAILY TAKEN BY MOUTH
     Route: 048
     Dates: start: 20150630, end: 20150829
  3. VITAMIN B [Concomitant]
     Active Substance: VITAMIN B
  4. BARACLUDE [Concomitant]
     Active Substance: ENTECAVIR
  5. CALCIUM [Concomitant]
     Active Substance: CALCIUM
  6. VITAMIN D [Concomitant]
     Active Substance: CHOLECALCIFEROL

REACTIONS (5)
  - Product substitution issue [None]
  - Product quality issue [None]
  - Hepatitis B [None]
  - Disease recurrence [None]
  - Drug effect decreased [None]

NARRATIVE: CASE EVENT DATE: 20150828
